FAERS Safety Report 4276196-1 (Version None)
Quarter: 2004Q1

REPORT INFORMATION
  Report Type: 
  Country: None (occurrence: None)
  Receive Date: 20040121
  Receipt Date: 20030121
  Transmission Date: 20041129
  Serious: No
  Sender: FDA-Public Use
  Company Number: US-GLAXOSMITHKLINE-A0393429A

PATIENT
  Age: 26 Year
  Sex: Female

DRUGS (6)
  1. ZIAGEN [Suspect]
     Indication: HIV INFECTION
     Dosage: 1TAB TWICE PER DAY
     Route: 048
     Dates: end: 20030121
  2. SUSTIVA [Concomitant]
     Indication: HIV INFECTION
  3. TENOFOVIR [Concomitant]
     Indication: HIV INFECTION
  4. CIPRO [Concomitant]
  5. RIFAMPIN [Concomitant]
  6. UNSPECIFIED MEDICATIONS [Concomitant]

REACTIONS (4)
  - EPIGASTRIC DISCOMFORT [None]
  - LYMPHADENOPATHY [None]
  - RASH ERYTHEMATOUS [None]
  - RASH PUSTULAR [None]
